FAERS Safety Report 12262352 (Version 2)
Quarter: 2016Q2

REPORT INFORMATION
  Report Type: Spontaneous
  Country: FR (occurrence: FR)
  Receive Date: 20160413
  Receipt Date: 20160602
  Transmission Date: 20160815
  Serious: Yes (Other)
  Sender: FDA-Public Use
  Company Number: FR-OTSUKA-2016_007928

PATIENT
  Age: 73 Year
  Sex: Female
  Weight: 49 kg

DRUGS (9)
  1. DACOGEN [Suspect]
     Active Substance: DECITABINE
     Indication: CHRONIC MYELOMONOCYTIC LEUKAEMIA
     Dosage: 29.5 MG, IN 1 CYCLICAL 1 CYCLE
     Route: 042
     Dates: start: 20151130, end: 20151204
  2. DACOGEN [Suspect]
     Active Substance: DECITABINE
     Dosage: UNK, IN 1 CYCLICAL
     Route: 042
  3. INEXIUM [Concomitant]
     Active Substance: ESOMEPRAZOLE
     Indication: GASTROOESOPHAGEAL REFLUX DISEASE
     Dosage: 20 MG, UNK
     Route: 048
  4. MIANSERINE [Concomitant]
     Active Substance: MIANSERIN HYDROCHLORIDE
     Indication: DEPRESSION
     Dosage: 15 MG, UNK
     Route: 048
  5. LEXOMIL [Concomitant]
     Active Substance: BROMAZEPAM
     Indication: ANXIETY
     Dosage: 7.5 MG, UNK
     Route: 048
  6. DACOGEN [Suspect]
     Active Substance: DECITABINE
     Dosage: 29.5 MG, IN 1 CYCLICAL
     Route: 042
     Dates: start: 20160222, end: 20160226
  7. NOCTAMIDE [Concomitant]
     Active Substance: LORMETAZEPAM
     Indication: INSOMNIA
     Dosage: 2 MG, UNK
     Route: 048
  8. AERIUS [Concomitant]
     Active Substance: DESLORATADINE
     Indication: PRODUCT USED FOR UNKNOWN INDICATION
     Dosage: UNK
     Route: 048
  9. ACLASTA [Concomitant]
     Active Substance: ZOLEDRONIC ACID
     Indication: OSTEOPOROSIS
     Dosage: UNK
     Route: 065

REACTIONS (1)
  - Osteonecrosis [Not Recovered/Not Resolved]

NARRATIVE: CASE EVENT DATE: 201512
